FAERS Safety Report 8582294-4 (Version None)
Quarter: 2012Q3

REPORT INFORMATION
  Report Type: 
  Country: None (occurrence: None)
  Receive Date: 20120727
  Receipt Date: 20120716
  Transmission Date: 20120928
  Serious: Yes (Life-Threatening, Hospitalization, Other)
  Sender: FDA-Public Use
  Company Number: 2012P1049551

PATIENT
  Age: 11 Year
  Sex: Male

DRUGS (2)
  1. ALBENDAZOLE (NO PREF. NAME) [Suspect]
     Indication: ABDOMINAL PAIN
     Dosage: 3 TABLETS; QD; PO
     Route: 048
     Dates: start: 20111108, end: 20111109
  2. IBUPROFEN [Concomitant]

REACTIONS (5)
  - ERYTHEMA [None]
  - NEPHRITIS [None]
  - CONSTIPATION [None]
  - VOMITING [None]
  - HENOCH-SCHONLEIN PURPURA [None]
